FAERS Safety Report 5280358-4 (Version None)
Quarter: 2007Q1

REPORT INFORMATION
  Report Type: 
  Country: None (occurrence: None)
  Receive Date: 20070326
  Receipt Date: 20070326
  Transmission Date: 20070707
  Serious: Yes (Hospitalization)
  Sender: FDA-Public Use
  Company Number: None

PATIENT
  Age: 86 Year
  Sex: Male
  Weight: 71 kg

DRUGS (2)
  1. MIRTAZAPINE TAB 30MG 30MG [Suspect]
     Indication: AFFECTIVE DISORDER
     Dosage: 30MG DAILY PO
     Route: 048
     Dates: start: 20070302, end: 20070302
  2. MORPHINE SULF SR 15MG TAB 15MG [Suspect]
     Indication: PAIN
     Dosage: 15MG Q12H PO
     Route: 048
     Dates: start: 20070302, end: 20070302

REACTIONS (1)
  - DELIRIUM [None]
